FAERS Safety Report 7446320-8 (Version None)
Quarter: 2011Q2

REPORT INFORMATION
  Report Type: 
  Country: None (occurrence: None)
  Receive Date: 20110429
  Receipt Date: 20100629
  Transmission Date: 20111010
  Serious: No
  Sender: FDA-Public Use
  Company Number: US-ASTRAZENECA-2010SE24748

PATIENT
  Sex: Female

DRUGS (1)
  1. NEXIUM [Suspect]
     Route: 048

REACTIONS (5)
  - DYSPHAGIA [None]
  - VOMITING [None]
  - ABDOMINAL PAIN UPPER [None]
  - DEHYDRATION [None]
  - UNDERDOSE [None]
